FAERS Safety Report 11007945 (Version 1)
Quarter: 2015Q2

REPORT INFORMATION
  Report Type: Spontaneous
  Country: JP (occurrence: JP)
  Receive Date: 20150410
  Receipt Date: 20150410
  Transmission Date: 20150821
  Serious: Yes (Death, Hospitalization)
  Sender: FDA-Public Use
  Company Number: PHHY2015JP040446

PATIENT
  Age: 53 Year
  Sex: Male
  Weight: 54 kg

DRUGS (1)
  1. ISONIAZID. [Suspect]
     Active Substance: ISONIAZID
     Indication: TUBERCULOSIS
     Dosage: 300 MG, UNK
     Route: 065

REACTIONS (12)
  - Acute hepatic failure [Fatal]
  - Abnormal behaviour [Unknown]
  - Hepatic atrophy [Unknown]
  - Hepatic encephalopathy [Unknown]
  - Somnolence [Unknown]
  - Ocular icterus [Unknown]
  - Asterixis [Unknown]
  - Ascites [Unknown]
  - Malaise [Unknown]
  - Jaundice [Unknown]
  - Coma hepatic [Unknown]
  - Drug-induced liver injury [Unknown]
